FAERS Safety Report 9614701 (Version 1)
Quarter: 2013Q4

REPORT INFORMATION
  Report Type: Spontaneous
  Country: US (occurrence: None)
  Receive Date: 20131009
  Receipt Date: 20131009
  Transmission Date: 20140711
  Serious: Yes (Death, Hospitalization)
  Sender: FDA-Public Use
  Company Number: None

PATIENT
  Age: 66 Year
  Sex: Female
  Weight: 107 kg

DRUGS (1)
  1. CYTARABINE [Suspect]
     Indication: ACUTE MYELOID LEUKAEMIA
     Dates: start: 20130905

REACTIONS (7)
  - Febrile neutropenia [None]
  - Staphylococcal bacteraemia [None]
  - Respiratory failure [None]
  - Lobar pneumonia [None]
  - Acute respiratory distress syndrome [None]
  - Septic shock [None]
  - Multi-organ failure [None]
